FAERS Safety Report 19015060 (Version 2)
Quarter: 2021Q2

REPORT INFORMATION
  Report Type: Spontaneous
  Country: JP (occurrence: JP)
  Receive Date: 20210317
  Receipt Date: 20210414
  Transmission Date: 20210717
  Serious: Yes (Hospitalization, Other)
  Sender: FDA-Public Use
  Company Number: JP-009507513-2012JPN001162J

PATIENT
  Age: 86 Year
  Sex: Female
  Weight: 41 kg

DRUGS (12)
  1. AMLODIPINE [Concomitant]
     Active Substance: AMLODIPINE BESYLATE
     Dosage: 5 MILLIGRAM, QD
     Route: 048
  2. RABEPRAZOLE NA [Concomitant]
     Active Substance: RABEPRAZOLE SODIUM
     Dosage: 10 MILLIGRAM, QD
     Route: 048
  3. FERROUS SULFATE. [Concomitant]
     Active Substance: FERROUS SULFATE
     Dosage: 105 MILLIGRAM, QD
     Route: 048
     Dates: start: 20201125, end: 20201201
  4. AXITINIB [Concomitant]
     Active Substance: AXITINIB
     Dosage: 5 MILLIGRAM, BID
     Route: 048
     Dates: start: 20201119, end: 20201127
  5. BETANIS [Concomitant]
     Active Substance: MIRABEGRON
     Indication: NOCTURIA
     Dosage: 50 MILLIGRAM, QD
     Route: 048
  6. RISEDRONATE NA [Concomitant]
     Active Substance: RISEDRONATE SODIUM
     Dosage: 2.5 MILLIGRAM, QD
     Route: 048
  7. BROTIZOLAM [Concomitant]
     Active Substance: BROTIZOLAM
     Indication: INSOMNIA
     Dosage: 0.25 MILLIGRAM, PRN
     Route: 048
     Dates: start: 20201122
  8. ISOSORBIDE. [Concomitant]
     Active Substance: ISOSORBIDE
     Dosage: 20 MILLIGRAM, BID
     Route: 048
  9. KEYTRUDA [Suspect]
     Active Substance: PEMBROLIZUMAB
     Indication: RENAL CELL CARCINOMA STAGE IV
     Dosage: 200 MILLIGRAM, Q3W
     Route: 041
     Dates: start: 20201119, end: 20201119
  10. DEXTROMETHORPHAN [Concomitant]
     Active Substance: DEXTROMETHORPHAN
     Dosage: 45 MILLIGRAM, TID
     Route: 048
     Dates: start: 20201120, end: 20201124
  11. CALONAL [Concomitant]
     Active Substance: ACETAMINOPHEN
     Dosage: 400 MILLIGRAM, TID
     Route: 048
     Dates: start: 20201125, end: 20201204
  12. MIYA?BM [Concomitant]
     Active Substance: CLOSTRIDIUM BUTYRICUM SPORES STRAIN M-55
     Dosage: 1 DOSAGE FORM, QD
     Route: 048
     Dates: start: 20201122, end: 20201201

REACTIONS (3)
  - Immune-mediated lung disease [Recovering/Resolving]
  - Dementia [Unknown]
  - Malignant neoplasm progression [Unknown]

NARRATIVE: CASE EVENT DATE: 20201126
